FAERS Safety Report 5760788-4 (Version None)
Quarter: 2008Q2

REPORT INFORMATION
  Report Type: 
  Country: None (occurrence: None)
  Receive Date: 20080606
  Receipt Date: 20080529
  Transmission Date: 20081010
  Serious: Yes (Other)
  Sender: FDA-Public Use
  Company Number: GB-JNJFOC-20080506078

PATIENT
  Age: 44 Year
  Sex: Female

DRUGS (11)
  1. HALOPERIDOL [Suspect]
     Indication: HOSTILITY
     Route: 065
  2. HALOPERIDOL [Suspect]
     Indication: AGITATION
     Route: 065
  3. HALOPERIDOL [Suspect]
     Indication: BIPOLAR DISORDER
     Route: 065
  4. OLANZAPINE [Suspect]
     Dosage: 20 TUG DOSE
     Route: 065
  5. OLANZAPINE [Suspect]
     Indication: BIPOLAR DISORDER
     Dosage: 30 TNG DOSE
     Route: 065
  6. DIAZEPAM [Suspect]
     Indication: HOSTILITY
     Route: 065
  7. DIAZEPAM [Suspect]
     Indication: AGITATION
     Route: 065
  8. VALPROATE SODIUM [Suspect]
     Indication: BIPOLAR DISORDER
     Route: 065
  9. ZUCLOPENTHIXOL ACETATE [Suspect]
     Indication: HOSTILITY
     Route: 065
  10. ZUCLOPENTHIXOL ACETATE [Suspect]
     Indication: BIPOLAR DISORDER
     Route: 065
  11. ZUCLOPENTHIXOL ACETATE [Suspect]
     Indication: AGITATION
     Route: 065

REACTIONS (4)
  - DELUSION [None]
  - HYPERPROLACTINAEMIA [None]
  - SOMATOFORM DISORDER PREGNANCY [None]
  - WEIGHT INCREASED [None]
